FAERS Safety Report 24015140 (Version 4)
Quarter: 2024Q3

REPORT INFORMATION
  Report Type: Spontaneous
  Country: DE (occurrence: DE)
  Receive Date: 20240626
  Receipt Date: 20240822
  Transmission Date: 20241016
  Serious: Yes (Life-Threatening, Other)
  Sender: NOVARTIS
  Company Number: DE-002147023-NVSC2024DE130278

PATIENT
  Age: 70 Year
  Sex: Female

DRUGS (1)
  1. COSENTYX [Suspect]
     Active Substance: SECUKINUMAB
     Indication: Psoriasis
     Dosage: 300 MG, Q4W (AUTOINJECTOR)
     Route: 065
     Dates: start: 20190117, end: 20240717

REACTIONS (1)
  - Malignant melanoma [Recovered/Resolved]

NARRATIVE: CASE EVENT DATE: 20240618
